FAERS Safety Report 16418025 (Version 1)
Quarter: 2019Q2

REPORT INFORMATION
  Report Type: Spontaneous
  Country: JP (occurrence: JP)
  Receive Date: 20190611
  Receipt Date: 20190611
  Transmission Date: 20190711
  Serious: Yes (Other)
  Sender: FDA-Public Use
  Company Number: PHHY2019JP131784

PATIENT

DRUGS (3)
  1. 5-FLUOROURACIL [Suspect]
     Active Substance: FLUOROURACIL
     Indication: OESOPHAGEAL CARCINOMA
     Dosage: 600 MG/M2, ON DAYS 1-4 REPEATED EVERY 4 WEEKS FOR TWO CYCLES
     Route: 042
  2. CISPLATIN. [Suspect]
     Active Substance: CISPLATIN
     Indication: OESOPHAGEAL CARCINOMA
     Dosage: 60 MG/M2, ON DAY 1 REPEATED EVERY 4 WEEKS FOR TWO CYCLES
     Route: 042
  3. DOCETAXEL. [Suspect]
     Active Substance: DOCETAXEL
     Indication: OESOPHAGEAL CARCINOMA
     Dosage: 50 MG/M2, ON DAY 1 REPEATED EVERY 4 WEEKS FOR TWO CYCLES
     Route: 042

REACTIONS (2)
  - Oesophageal stenosis [Unknown]
  - Product use in unapproved indication [Unknown]
